FAERS Safety Report 20945155 (Version 25)
Quarter: 2023Q1

REPORT INFORMATION
  Report Type: Report from Study
  Country: GB (occurrence: None)
  Receive Date: 20220610
  Receipt Date: 20230324
  Transmission Date: 20230418
  Serious: Yes (Death, Hospitalization, Congenital Anomaly, Other)
  Sender: FDA-Public Use
  Company Number: GB-GILEAD-2018-0347475

PATIENT
  Age: 43 Year
  Sex: Female
  Weight: 43 kg

DRUGS (250)
  1. METFORMIN [Suspect]
     Active Substance: METFORMIN HYDROCHLORIDE
     Indication: Product used for unknown indication
     Dosage: UNKNOWN; DRUG DOSAGE FORM: 245; 1 (TRIMESTER)
     Route: 065
  2. METFORMIN [Suspect]
     Active Substance: METFORMIN HYDROCHLORIDE
     Indication: Product used for unknown indication
     Dosage: UNKNOWN, 1 (TRIMESTER)
     Route: 048
  3. METFORMIN [Suspect]
     Active Substance: METFORMIN HYDROCHLORIDE
     Dosage: UNK
     Route: 065
  4. METFORMIN [Suspect]
     Active Substance: METFORMIN HYDROCHLORIDE
     Dosage: UNK
     Route: 048
  5. METFORMIN [Suspect]
     Active Substance: METFORMIN HYDROCHLORIDE
     Dosage: UNK, GESTATION PERIOD: 1 (WEEKS)
     Route: 065
  6. METFORMIN [Suspect]
     Active Substance: METFORMIN HYDROCHLORIDE
     Dosage: UNK, GESTATION PERIOD: 1 (WEEKS)
     Route: 048
  7. LOPINAVIR\RITONAVIR [Suspect]
     Active Substance: LOPINAVIR\RITONAVIR
     Indication: HIV infection
     Dosage: UNK THERAPY START DATE: 10 JUN 2010
     Route: 048
     Dates: end: 20100610
  8. LOPINAVIR\RITONAVIR [Suspect]
     Active Substance: LOPINAVIR\RITONAVIR
     Indication: Antiviral treatment
     Dosage: UNK THERAPY START DATE: 10 JUN 2020
     Route: 048
  9. LOPINAVIR\RITONAVIR [Suspect]
     Active Substance: LOPINAVIR\RITONAVIR
     Indication: HIV infection
     Dosage: UNK (PATIENT WAS NOT TAKING MEDICINE AT CONCEPTION) 1 (TRIMESTER)
     Route: 048
     Dates: end: 20200610
  10. LOPINAVIR\RITONAVIR [Suspect]
     Active Substance: LOPINAVIR\RITONAVIR
     Indication: Product used for unknown indication
     Dosage: UNK
     Route: 048
     Dates: end: 20100610
  11. LOPINAVIR\RITONAVIR [Suspect]
     Active Substance: LOPINAVIR\RITONAVIR
     Dosage: UNK; 1 (TRIMESTER)
     Route: 065
  12. LOPINAVIR\RITONAVIR [Suspect]
     Active Substance: LOPINAVIR\RITONAVIR
     Dosage: UNK (PATIENT WAS NOT TAKING MEDICINE AT CONCEPTION) 1 (TRIMESTER)?THERAPY START DATE: 10 JUN 2010
     Route: 048
     Dates: end: 20200610
  13. LOPINAVIR\RITONAVIR [Suspect]
     Active Substance: LOPINAVIR\RITONAVIR
     Dosage: UNK, THERAPY START DATE: 10 JUN 2020?1 (TRIMESTER)
     Route: 048
  14. LOPINAVIR\RITONAVIR [Suspect]
     Active Substance: LOPINAVIR\RITONAVIR
     Dosage: UNK THERAPY START DATE: 10 JUN 2010?1 (TRIMESTER)
     Route: 048
     Dates: end: 20100610
  15. LOPINAVIR\RITONAVIR [Suspect]
     Active Substance: LOPINAVIR\RITONAVIR
     Dosage: 1 (TRIMESTER)?THERAPY START DATE: 10 JUN 2010
     Route: 048
     Dates: end: 20100610
  16. LOPINAVIR\RITONAVIR [Suspect]
     Active Substance: LOPINAVIR\RITONAVIR
     Dosage: UNK; 1 (TRIMESTER)
     Route: 048
  17. LOPINAVIR\RITONAVIR [Suspect]
     Active Substance: LOPINAVIR\RITONAVIR
     Dosage: UNK; 1 (TRIMESTER)
     Route: 050
  18. LOPINAVIR\RITONAVIR [Suspect]
     Active Substance: LOPINAVIR\RITONAVIR
     Dosage: UNK; 1 (TRIMESTER)
     Route: 048
     Dates: end: 20100610
  19. LOPINAVIR\RITONAVIR [Suspect]
     Active Substance: LOPINAVIR\RITONAVIR
     Dosage: UNK(PATIENT WAS NOT TAKING MEDICINE AT CONCEPTION) GESTATION PERIOD:1 (WEEKS)START DATE: 10 JUN 2010
     Route: 048
  20. LOPINAVIR\RITONAVIR [Suspect]
     Active Substance: LOPINAVIR\RITONAVIR
     Dosage: UNK, THERAPY START DATE: 10 JUN 2020. GESTATION PERIOD: 1 (WEEKS)
     Route: 050
  21. LOPINAVIR\RITONAVIR [Suspect]
     Active Substance: LOPINAVIR\RITONAVIR
     Dosage: 1 DOSAGE FORM, GESTATION PERIOD: 1 (WEEKS)
     Route: 048
     Dates: end: 20100610
  22. LOPINAVIR\RITONAVIR [Suspect]
     Active Substance: LOPINAVIR\RITONAVIR
     Dosage: UNK, GESTATION PERIOD: 1 (WEEKS)
     Route: 065
  23. LOPINAVIR\RITONAVIR [Suspect]
     Active Substance: LOPINAVIR\RITONAVIR
     Dosage: UNK, THERAPY START DATE: 10 JUN 2022, GESTATION PERIOD: 1 (WEEKS)
     Route: 065
  24. LOPINAVIR\RITONAVIR [Suspect]
     Active Substance: LOPINAVIR\RITONAVIR
     Dosage: UNK, QD, THERAPY START DATE: 10 JUN 2022, GESTATION PERIOD: 1 (WEEKS)
     Route: 065
  25. LOPINAVIR\RITONAVIR [Suspect]
     Active Substance: LOPINAVIR\RITONAVIR
     Dosage: UNK(PATIENT WAS NOT TAKING MEDICINE AT CONCEPTION) GESTATION PERIOD:1 (WEEKS)
     Route: 048
  26. LOPINAVIR\RITONAVIR [Suspect]
     Active Substance: LOPINAVIR\RITONAVIR
     Dosage: UNK, GESTATION PERIOD: 1 (WEEKS)
     Route: 050
  27. LOPINAVIR\RITONAVIR [Suspect]
     Active Substance: LOPINAVIR\RITONAVIR
     Dosage: UNK(PATIENT WAS NOT TAKING MEDICINE AT CONCEPTION),START DATE:10 JUN 2020,GESTATION PERIOD:1 (WEEKS)
     Route: 050
  28. VITAMIN B12 [Suspect]
     Active Substance: CYANOCOBALAMIN
     Indication: Supplementation therapy
     Dosage: UNK
     Route: 065
  29. VITAMIN B12 [Suspect]
     Active Substance: CYANOCOBALAMIN
     Indication: Product used for unknown indication
     Dosage: UNK
     Route: 065
  30. VITAMIN B12 [Suspect]
     Active Substance: CYANOCOBALAMIN
     Dosage: THERAPY START DATE 10 JUN 2010
     Route: 048
  31. VITAMIN B12 [Suspect]
     Active Substance: CYANOCOBALAMIN
     Dosage: UNK, THERAPY START DATE 10 JUN 2010
     Route: 048
  32. VITAMIN B12 [Suspect]
     Active Substance: CYANOCOBALAMIN
     Dosage: UNK GESTATION PERIOD: 1 (WEEKS)
     Route: 065
  33. VITAMIN B12 [Suspect]
     Active Substance: CYANOCOBALAMIN
     Dosage: UNK, THERAPY START DATE 10 JUN 2010 GESTATION PERIOD: 1 (WEEKS)
     Route: 048
  34. VITAMIN B12 [Suspect]
     Active Substance: CYANOCOBALAMIN
     Dosage: UNK, THERAPY START DATE 10 JUN 2010 GESTATION PERIOD: 1 (WEEKS)
     Route: 065
  35. EFAVIRENZ [Suspect]
     Active Substance: EFAVIRENZ
     Indication: HIV infection
     Dosage: 1 TABLET/CAPSULE, DAILY, THERAPY START DATE: 06 OCT 2017, DOSAGE FORM 82
     Route: 048
  36. EFAVIRENZ [Suspect]
     Active Substance: EFAVIRENZ
     Indication: Product used for unknown indication
     Dosage: THERAPY START DATE: 05 FEB 2018; 1 (TRIMESTER)
     Route: 048
  37. EFAVIRENZ [Suspect]
     Active Substance: EFAVIRENZ
     Indication: Product used for unknown indication
     Dosage: UNK, THERAPY START DATE: 06 OCT 2017
     Route: 048
  38. EFAVIRENZ [Suspect]
     Active Substance: EFAVIRENZ
     Dosage: UNK, THERAPY START DATE: 06 OCT 2017, 1 DOSAGE FORM, QD; 1 TABLET/CAPSULE, DAILY
     Route: 048
     Dates: end: 20180205
  39. EFAVIRENZ [Suspect]
     Active Substance: EFAVIRENZ
     Dosage: THERAPY START DATE: 06 OCT 2017, 1 DOSAGE FORM, QD; 1 TABLET/CAPSULE, DAILY?1 (TRIMESTER)
     Route: 048
  40. EFAVIRENZ [Suspect]
     Active Substance: EFAVIRENZ
     Dosage: THERAPY START DATE: 06 OCT 2017, 1 DOSAGE FORM, QD?1 (TRIMESTER)
     Route: 048
  41. EFAVIRENZ [Suspect]
     Active Substance: EFAVIRENZ
     Dosage: 1 DOSAGE FORM, QD;?1 (TRIMESTER)
     Route: 048
  42. EFAVIRENZ [Suspect]
     Active Substance: EFAVIRENZ
     Dosage: 1 DOSAGE FORM, QD; 1 TABLET/CAPSULE, QD?1 (TRIMESTER)
     Route: 048
  43. EFAVIRENZ [Suspect]
     Active Substance: EFAVIRENZ
     Dosage: UNK, THERAPY START DATE: 06 OCT 2017, 1 DOSAGE FORM, QD; 1 TABLET/CAPSULE, DAILY?1 (TRIMESTER)
     Route: 048
  44. EFAVIRENZ [Suspect]
     Active Substance: EFAVIRENZ
     Dosage: THERAPY START DATE: 05 FEB 2018, 1 DOSAGE FORM, QD;?1 (TRIMESTER)
     Route: 048
  45. EFAVIRENZ [Suspect]
     Active Substance: EFAVIRENZ
     Dosage: THERAPY START DATE: 10 JUN 2010, 1 DOSAGE FORM, QD?1 (TRIMESTER)
     Route: 048
  46. EFAVIRENZ [Suspect]
     Active Substance: EFAVIRENZ
     Dosage: 1 DOSAGE FORM, QD (1 TABLET/CAPSULE, DAILY), THERAPY START DATE: 06 OCT 2017
     Route: 048
  47. EFAVIRENZ [Suspect]
     Active Substance: EFAVIRENZ
     Dosage: THERAPY START DATE: 06 OCT 2017,1 DOSAGE FORM, QD
     Route: 048
  48. EFAVIRENZ [Suspect]
     Active Substance: EFAVIRENZ
     Dosage: THERAPY START DATE: 06 OCT 2017 1 DOSAGE FORM, QD
     Route: 048
     Dates: end: 20180205
  49. EFAVIRENZ [Suspect]
     Active Substance: EFAVIRENZ
     Dosage: UNK, QD THERAPY START DATE: 06 OCT 2017
     Route: 065
  50. EFAVIRENZ [Suspect]
     Active Substance: EFAVIRENZ
     Dosage: 1 DOSAGE FORM, QD, 1 TABLET/CAPSULE, DAILY, GESTATION PERIOD: 1 (WEEKS)
     Route: 048
  51. EFAVIRENZ [Suspect]
     Active Substance: EFAVIRENZ
     Dosage: 1 DOSAGE FORM, QD, THERAPY START DATE: 05 FEB 2018
     Route: 048
  52. EFAVIRENZ [Suspect]
     Active Substance: EFAVIRENZ
     Dosage: 1 DOSAGE FORM, QD, 1 TABLET/CAPSULE, DAILY. GESTATION PERIOD: 1 (WEEKS)
     Route: 048
  53. EFAVIRENZ [Suspect]
     Active Substance: EFAVIRENZ
     Dosage: UNK, GESTATION PERIOD: 1 (WEEKS)
     Route: 048
  54. EMTRICITABINE [Suspect]
     Active Substance: EMTRICITABINE
     Indication: HIV infection
     Dosage: 1 DOSAGE FORM QD THERAPY START DATE 06-OCT-2017
     Route: 048
     Dates: end: 20180205
  55. EMTRICITABINE [Suspect]
     Active Substance: EMTRICITABINE
     Indication: Supplementation therapy
     Dosage: 1 TABLET/CAPSULE, DAILY, THERAPY START DATE 05-FEB-2018, 1ST TRIMESTER; DOSAGE FORM 245
     Route: 048
  56. EMTRICITABINE [Suspect]
     Active Substance: EMTRICITABINE
     Indication: Product used for unknown indication
     Dosage: 1 TABLET/CAPSULE, DAILY THERAPY START DATE 06-OCT-2017
     Route: 048
     Dates: end: 20180205
  57. EMTRICITABINE [Suspect]
     Active Substance: EMTRICITABINE
     Dosage: UNK
     Route: 048
  58. EMTRICITABINE [Suspect]
     Active Substance: EMTRICITABINE
     Dosage: 1 DOSAGE FORM, QD; 1ST TRIMESTER
     Route: 048
  59. EMTRICITABINE [Suspect]
     Active Substance: EMTRICITABINE
     Dosage: 1 DOSAGE FORM, QD; 1 (WEEKS), START DATE: 10-JUN-2017
     Route: 048
     Dates: end: 20180205
  60. EMTRICITABINE [Suspect]
     Active Substance: EMTRICITABINE
     Dosage: UNK, 1 (WEEKS)- GESTATION PERIOD
     Route: 065
  61. EMTRICITABINE [Suspect]
     Active Substance: EMTRICITABINE
     Dosage: 1 DOSAGE FORM QD(1 TABLET/CAPSULE, DAILY), GESTATION PERIOD-1 (WEEKS)?THERAPY START DATE 05 FEB 2018
     Route: 048
  62. EMTRICITABINE [Suspect]
     Active Substance: EMTRICITABINE
     Dosage: UNK, 1 (WEEKS)- GESTATION PERIOD
     Route: 065
  63. EMTRICITABINE [Suspect]
     Active Substance: EMTRICITABINE
     Dosage: 1 DOSAGE FORM QD, GESTATION PERIOD-1 (WEEKS)
     Route: 048
  64. EMTRICITABINE [Suspect]
     Active Substance: EMTRICITABINE
     Dosage: 1 DOSAGE FORM QD(1 TABLET/CAPSULE, DAILY), GESTATION PERIOD-1 (WEEKS)?THERAPY START DATE 05 FEB 2018
     Route: 048
     Dates: end: 20171006
  65. EMTRICITABINE [Suspect]
     Active Substance: EMTRICITABINE
     Dosage: 1 DOSAGE FORM, QD; 1 (WEEKS), START DATE: 06 OCT 2017
     Route: 048
  66. EMTRICITABINE [Suspect]
     Active Substance: EMTRICITABINE
     Dosage: 1 DOSAGE FORM QD, GESTATION PERIOD-1 (WEEKS)
     Route: 048
  67. EMTRICITABINE [Suspect]
     Active Substance: EMTRICITABINE
     Dosage: 1 DOSAGE FORM, QD; 1 TABLET/CAPSULE, DAILY?1 (WEEKS), START DATE: 10-JUN-2017
     Route: 048
     Dates: end: 20180205
  68. EMTRICITABINE [Suspect]
     Active Substance: EMTRICITABINE
     Dosage: 1 DOSAGE FORM, QD; 1 (WEEKS), START DATE: 05 FEB 2018
     Route: 048
  69. EMTRICITABINE [Suspect]
     Active Substance: EMTRICITABINE
     Dosage: 1 DOSAGE FORM, QD, 1 DOSAGE FORM, QD, 1 (WEEKS)- GESTATION PERIOD
     Route: 048
  70. EMTRICITABINE [Suspect]
     Active Substance: EMTRICITABINE
     Dosage: 1 DOSAGE FORM, QD, 1 (TRIMESTER)
     Route: 048
  71. EMTRICITABINE [Suspect]
     Active Substance: EMTRICITABINE
     Dosage: 1 DOSAGE FORM, QD, TABLET/CAPSULE. 1 (TRIMESTER), THERAPY START DATE: 06 OCT 2017
     Route: 065
  72. EMTRICITABINE [Suspect]
     Active Substance: EMTRICITABINE
     Dosage: 1 DOSAGE FORM, QD. 1 (TRIMESTER), THERAPY START DATE: 06 OCT 2017
     Route: 065
     Dates: end: 20180205
  73. EMTRICITABINE [Suspect]
     Active Substance: EMTRICITABINE
     Dosage: 1 DOSAGE FORM, QD. 1 (TRIMESTER), THERAPY START DATE: 05 FEB 2018
     Route: 048
  74. EMTRICITABINE [Suspect]
     Active Substance: EMTRICITABINE
     Dosage: 1 DOSAGE FORM, QD, TABLET/CAPSULE. 1 (TRIMESTER)
     Route: 065
  75. EMTRICITABINE [Suspect]
     Active Substance: EMTRICITABINE
     Dosage: 1 DOSAGE FORM, QD, TABLET/CAPSULE. 1 (TRIMESTER), THERAPY START DATE: 06 OCT 2017
     Route: 048
     Dates: end: 20180205
  76. EMTRICITABINE [Suspect]
     Active Substance: EMTRICITABINE
     Dosage: 1 DOSAGE FORM, QD1 DOSAGE FORM QD, TABLET/CAPSULE. 1 (TRIMESTER), THERAPY START DATE: 05 FEB 2018
     Route: 048
     Dates: end: 20180205
  77. EMTRICITABINE\TENOFOVIR [Suspect]
     Active Substance: EMTRICITABINE\TENOFOVIR
     Indication: HIV infection
     Dosage: 1 DOSAGE FORM, QD THERAPY START DATE: 06-OCT-2017
     Route: 048
  78. EMTRICITABINE\TENOFOVIR [Suspect]
     Active Substance: EMTRICITABINE\TENOFOVIR
     Indication: Supplementation therapy
     Dosage: 1 DOSAGE FORM, QD, TABLET THERAPY START DATE: 05-FEB-2018
  79. EMTRICITABINE\TENOFOVIR [Suspect]
     Active Substance: EMTRICITABINE\TENOFOVIR
     Dosage: THERAPY START DATE: 10-JUN-2017
     Dates: end: 20170205
  80. EMTRICITABINE\TENOFOVIR [Suspect]
     Active Substance: EMTRICITABINE\TENOFOVIR
     Dosage: 1 DOSAGE FORM, QD. THERAPY START DATE: 10 JUN 2017
     Dates: end: 20180205
  81. EMTRICITABINE\TENOFOVIR [Suspect]
     Active Substance: EMTRICITABINE\TENOFOVIR
     Dosage: 1 DOSAGE FORM, QD, 1 (TRIMESTER), THERAPY START DATE: 05 FEB 2018
  82. EMTRICITABINE\TENOFOVIR [Suspect]
     Active Substance: EMTRICITABINE\TENOFOVIR
     Dosage: 1 DOSAGE FORM, QD, 1 (TRIMESTER)
  83. EMTRICITABINE\TENOFOVIR [Suspect]
     Active Substance: EMTRICITABINE\TENOFOVIR
     Dosage: UNK, 1 (TRIMESTER)
     Route: 048
  84. EMTRICITABINE\TENOFOVIR [Suspect]
     Active Substance: EMTRICITABINE\TENOFOVIR
     Dosage: 1 DOSAGE FORM, QD. THERAPY START DATE: 06 OCT 2017
     Dates: end: 20180205
  85. EMTRICITABINE\TENOFOVIR [Suspect]
     Active Substance: EMTRICITABINE\TENOFOVIR
     Dosage: 1 DOSAGE FORM, QD, 1 TABLET/CAPSULE, DAILY THERAPY START DATE: 06-OCT-2017
     Route: 048
  86. EMTRICITABINE\TENOFOVIR [Suspect]
     Active Substance: EMTRICITABINE\TENOFOVIR
     Dosage: 1 DOSAGE FORM, QD, 1 TABLET/CAPSULE, DAILY, 1 (TRIMESTER), THERAPY START DATE: 05 FEB 2018
     Route: 048
  87. EMTRICITABINE\TENOFOVIR [Suspect]
     Active Substance: EMTRICITABINE\TENOFOVIR
     Dosage: 1 DOSAGE FORM, QD (1 TABLET/CAPSULE, DAILY), GESTATION PERIOD: 1 (WEEKS).
     Route: 048
  88. FOLIC ACID [Suspect]
     Active Substance: FOLIC ACID
     Indication: Supplementation therapy
     Dosage: 1 DF, QD (1 TABLET/CAPSULE, DAILY )
     Route: 048
  89. FOLIC ACID [Suspect]
     Active Substance: FOLIC ACID
     Indication: Product used for unknown indication
     Dosage: UNK
     Route: 065
  90. FOLIC ACID [Suspect]
     Active Substance: FOLIC ACID
     Dosage: 1 TABLET/CAPSULE
     Route: 048
  91. FOLIC ACID [Suspect]
     Active Substance: FOLIC ACID
     Dosage: UNK UNK, (1 TABLET/CAPSULE)
     Route: 048
  92. FOLIC ACID [Suspect]
     Active Substance: FOLIC ACID
     Dosage: UNK, 1 (TRIMESTER)
     Route: 065
  93. FOLIC ACID [Suspect]
     Active Substance: FOLIC ACID
     Dosage: 1 DF, QD (1 TABLET/CAPSULE, DAILY ), 1 (TRIMESTER)
     Route: 048
  94. FOLIC ACID [Suspect]
     Active Substance: FOLIC ACID
     Dosage: 1 TABLET/CAPSULE, 1 (TRIMESTER)
     Route: 048
  95. FOLIC ACID [Suspect]
     Active Substance: FOLIC ACID
     Dosage: 1 MILLIGRAM, QD, 1 (TRIMESTER)
     Route: 048
  96. FOLIC ACID [Suspect]
     Active Substance: FOLIC ACID
     Dosage: UNK, 1 (TRIMESTER)
     Route: 048
  97. FOLIC ACID [Suspect]
     Active Substance: FOLIC ACID
     Dosage: 1 DOSAGE FORM, QD, 1 DF, QD (1 TABLET/CAPSULE, DAILY), 1 (TRIMESTER)
     Route: 050
  98. FOLIC ACID [Suspect]
     Active Substance: FOLIC ACID
     Dosage: UNK, UNK, (1 TABLET/CAPSULE), 1(TRIMESTER)
     Route: 048
  99. FOLIC ACID [Suspect]
     Active Substance: FOLIC ACID
     Dosage: UNK UNK, (1 TABLET/CAPSULE), 1 (TRIMESTER)
     Route: 065
  100. FOLIC ACID [Suspect]
     Active Substance: FOLIC ACID
     Dosage: 1 DOSAGE FORM, QD (1 TABLET/CAPSULE, DAILY), 1 (TRIMESTER)
     Route: 065
  101. FOLIC ACID [Suspect]
     Active Substance: FOLIC ACID
     Dosage: 1 MG, QD, 1 (TRIMESTER)
     Route: 065
  102. INSULIN ASPART [Suspect]
     Active Substance: INSULIN ASPART
     Indication: Product used for unknown indication
     Route: 065
  103. INSULIN ASPART [Suspect]
     Active Substance: INSULIN ASPART
     Indication: Product used for unknown indication
     Dosage: UNK UNK, QW 1 (TRIMESTER)
     Route: 048
  104. INSULIN ASPART [Suspect]
     Active Substance: INSULIN ASPART
     Dosage: UNK, QW 1 (TRIMESTER)
     Route: 050
  105. INSULIN ASPART [Suspect]
     Active Substance: INSULIN ASPART
     Dosage: UNK, QW 1 (TRIMESTER)
     Route: 065
  106. INSULIN ASPART [Suspect]
     Active Substance: INSULIN ASPART
     Dosage: UNK, 1 (TRIMESTER)
     Route: 050
  107. INSULIN ASPART [Suspect]
     Active Substance: INSULIN ASPART
     Dosage: UNK, 1 (TRIMESTER)
     Route: 065
  108. INSULIN ASPART [Suspect]
     Active Substance: INSULIN ASPART
     Dosage: UNK, 1 (TRIMESTER)
     Route: 048
  109. INSULIN ASPART [Suspect]
     Active Substance: INSULIN ASPART
     Dosage: UNK, GESTATION PERIOD: 1 (WEEKS)
     Route: 065
  110. INSULIN ASPART [Suspect]
     Active Substance: INSULIN ASPART
     Dosage: UNK, QW, GESTATION PERIOD: 1 (WEEKS)
     Route: 050
  111. INSULIN ASPART [Suspect]
     Active Substance: INSULIN ASPART
     Dosage: UNK, QW, GESTATION PERIOD: 1 (WEEKS)
     Route: 065
  112. INSULIN ASPART [Suspect]
     Active Substance: INSULIN ASPART
     Dosage: UNK, GESTATION PERIOD: 1 (WEEKS)
     Route: 048
  113. ISENTRESS [Suspect]
     Active Substance: RALTEGRAVIR POTASSIUM
     Indication: HIV infection
     Dosage: 800 MILLIGRAM, QID, THERAPY START DATE: 10-JUN-2010
     Route: 048
  114. ISENTRESS [Suspect]
     Active Substance: RALTEGRAVIR POTASSIUM
     Indication: Product used for unknown indication
     Route: 048
  115. ISENTRESS [Suspect]
     Active Substance: RALTEGRAVIR POTASSIUM
     Dosage: 3200 MILLIGRAM, ONCE A DAY (3200 MG, QD (800 MILLIGRAM, QID),  THERAPY START DATE: 10-JUN-2010
     Route: 048
  116. ISENTRESS [Suspect]
     Active Substance: RALTEGRAVIR POTASSIUM
     Dosage: 3200 MILLIGRAM, QD, (800 MILLIGRAM, QID), 1 (TRIMESTER) THERAPY START DATE: 10-JUN-2010
     Route: 048
  117. ISENTRESS [Suspect]
     Active Substance: RALTEGRAVIR POTASSIUM
     Dosage: 3200 MILLIGRAM, QD, (800 MG, QID, 800 MG, Q6H), 1 (TRIMESTER) THERAPY START DATE: 10-JUN-2010
     Route: 048
  118. ISENTRESS [Suspect]
     Active Substance: RALTEGRAVIR POTASSIUM
     Dosage: UNK, 1 (TRIMESTER) THERAPY START DATE: 10-JUN-2010
     Route: 048
  119. ISENTRESS [Suspect]
     Active Substance: RALTEGRAVIR POTASSIUM
     Dosage: 3200 MILLIGRAM, QD, (800 MG, QID, 800 MG, Q6H), 1 (TRIMESTER) THERAPY START DATE: 10-JUN-2010
     Route: 065
  120. ISENTRESS [Suspect]
     Active Substance: RALTEGRAVIR POTASSIUM
     Dosage: 800 MILLIGRAM, Q6H, Q6H), 1 (TRIMESTER) THERAPY START DATE: 10-JUN-2010
     Route: 065
  121. ISENTRESS [Suspect]
     Active Substance: RALTEGRAVIR POTASSIUM
     Dosage: 800 MILLIGRAM, Q6H, GESTATION PERIOD: 1 (WEEKS) THERAPY START DATE: 10-JUN-2010
     Route: 065
  122. ISENTRESS [Suspect]
     Active Substance: RALTEGRAVIR POTASSIUM
     Dosage: 3200 MILLIGRAM,QD(800 MG, QID, 800 MG, Q6H),GESTATION PERIOD:1 (WEEKS) START DATE:10-JUN-2010
     Route: 065
  123. ISENTRESS [Suspect]
     Active Substance: RALTEGRAVIR POTASSIUM
     Dosage: 3200 MG, QD, (800 MILLIGRAM, QID),GESTATION PERIOD:1 (WEEKS) THERAPY START DATE:10-JUN-2010
     Route: 050
  124. ISENTRESS [Suspect]
     Active Substance: RALTEGRAVIR POTASSIUM
     Dosage: 800 MILLIGRAM, QID, GESTATION PERIOD:1 (WEEKS)
     Route: 048
  125. ISENTRESS [Suspect]
     Active Substance: RALTEGRAVIR POTASSIUM
     Dosage: 800 MG, QID (800 MG, Q6H), GESTATION PERIOD:1 (WEEKS)
     Route: 050
  126. ISENTRESS [Suspect]
     Active Substance: RALTEGRAVIR POTASSIUM
     Dosage: 3200 MG, QD, (800 MG, QID, 800 MG, Q6H), GESTATION PERIOD: 1 (WEEKS)
     Route: 065
  127. ISENTRESS [Suspect]
     Active Substance: RALTEGRAVIR POTASSIUM
     Dosage: 3200 MG, QD, (800 MILLIGRAM, QID),GESTATION PERIOD:1 (WEEKS)
     Route: 050
  128. ISENTRESS [Suspect]
     Active Substance: RALTEGRAVIR POTASSIUM
     Dosage: 800 MILLIGRAM, Q6H, GESTATION PERIOD: 1 (WEEKS)
     Route: 065
  129. ISENTRESS [Suspect]
     Active Substance: RALTEGRAVIR POTASSIUM
     Dosage: UNK, GESTATION PERIOD:1 (WEEKS)
     Route: 065
  130. KALETRA [Suspect]
     Active Substance: LOPINAVIR\RITONAVIR
     Indication: HIV infection
     Dosage: UNK, THERAPY START DATE: 10-JUN-2010
     Route: 048
  131. KALETRA [Suspect]
     Active Substance: LOPINAVIR\RITONAVIR
     Indication: Product used for unknown indication
     Dosage: UNK, THERAPY START DATE: 10-JUN-2010
     Route: 065
  132. KALETRA [Suspect]
     Active Substance: LOPINAVIR\RITONAVIR
     Indication: Antiviral treatment
     Dosage: 1 DOSAGE FORM, GESTATION PERIOD: 1 (WEEKS)
     Route: 065
  133. KALETRA [Suspect]
     Active Substance: LOPINAVIR\RITONAVIR
     Dosage: UNK, THERAPY START DATE: 10-JUN-2010
     Route: 050
  134. KALETRA [Suspect]
     Active Substance: LOPINAVIR\RITONAVIR
     Dosage: 1 DOSAGE FORM, GESTATION PERIOD: 1 (WEEKS), THERAPY START DATE: 10-JUN-2010
     Route: 065
  135. KALETRA [Suspect]
     Active Substance: LOPINAVIR\RITONAVIR
     Dosage: UNK, GESTATION PERIOD: 1 (WEEKS)
     Route: 048
  136. LABETALOL [Suspect]
     Active Substance: LABETALOL\LABETALOL HYDROCHLORIDE
     Indication: Product used for unknown indication
     Dosage: UNK 1 (TRIMESTER)
     Route: 048
  137. LABETALOL [Suspect]
     Active Substance: LABETALOL\LABETALOL HYDROCHLORIDE
     Dosage: UNK; 1 (TRIMESTER)
     Route: 065
  138. LABETALOL [Suspect]
     Active Substance: LABETALOL\LABETALOL HYDROCHLORIDE
     Dosage: UNK; 1 (TRIMESTER)
     Route: 050
  139. LABETALOL [Suspect]
     Active Substance: LABETALOL\LABETALOL HYDROCHLORIDE
     Dosage: UNK; GESTATION PERIOD: 1 (WEEKS)
     Route: 050
  140. LABETALOL [Suspect]
     Active Substance: LABETALOL\LABETALOL HYDROCHLORIDE
     Dosage: UNK; GESTATION PERIOD: 1 (WEEKS)
     Route: 065
  141. LABETALOL [Suspect]
     Active Substance: LABETALOL\LABETALOL HYDROCHLORIDE
     Dosage: UNK GESTATION PERIOD: 1 (WEEKS)
     Route: 048
  142. LAMIVUDINE [Suspect]
     Active Substance: LAMIVUDINE
     Indication: Antiretroviral therapy
     Dosage: 300 MG, QD THERAPY START DATE: 01-JAN-2009, UNK; 1 (TRIMESTER)
     Route: 048
     Dates: end: 20100610
  143. LAMIVUDINE [Suspect]
     Active Substance: LAMIVUDINE
     Indication: HIV infection
     Dosage: UNK, THERAPY START DATE: 01-JAN-2009, 1 (TRIMESTER)
     Route: 048
     Dates: end: 20100610
  144. LAMIVUDINE [Suspect]
     Active Substance: LAMIVUDINE
     Indication: Product used for unknown indication
     Dosage: 300 MG, QD THERAPY START DATE: 01-JAN-2009, UNK; 1 (TRIMESTER)
     Route: 050
     Dates: end: 20100610
  145. LAMIVUDINE [Suspect]
     Active Substance: LAMIVUDINE
     Dosage: 300 MG, 1 (TRIMESTER)
     Route: 065
  146. LAMIVUDINE [Suspect]
     Active Substance: LAMIVUDINE
     Dosage: UNK, QK THERAPY START DATE: 10-JUN-2012, 1 (TRIMESTER)
     Route: 048
  147. LAMIVUDINE [Suspect]
     Active Substance: LAMIVUDINE
     Dosage: UNK, GESTATION PERIOD: 1 (WEEKS),THERAPY START DATE: 01 JAN 2009
     Route: 065
     Dates: end: 20100610
  148. LAMIVUDINE [Suspect]
     Active Substance: LAMIVUDINE
     Dosage: UNK, GESTATION PERIOD: 1 (WEEKS),THERAPY START DATE: 10 JUN 2010
     Route: 065
  149. LAMIVUDINE [Suspect]
     Active Substance: LAMIVUDINE
     Dosage: UNK, GESTATION PERIOD: 1 (WEEKS)
     Route: 065
  150. LOPINAVIR [Suspect]
     Active Substance: LOPINAVIR
     Indication: HIV infection
     Dosage: UNK THERAPY START DATE:10 JUN 2010
     Route: 048
  151. LOPINAVIR [Suspect]
     Active Substance: LOPINAVIR
     Indication: Product used for unknown indication
     Dosage: UNK; 1 (TRIMESTER)
     Route: 065
  152. LOPINAVIR [Suspect]
     Active Substance: LOPINAVIR
     Indication: Antiviral treatment
     Dosage: UNK, 1 (TRIMESTER) THERAPY START DATE:10 JUN 2010
     Route: 048
  153. LOPINAVIR [Suspect]
     Active Substance: LOPINAVIR
     Indication: HIV infection
     Dosage: UNK, 1 (TRIMESTER) THERAPY START DATE:10 JUN 2010
     Route: 065
  154. LOPINAVIR [Suspect]
     Active Substance: LOPINAVIR
     Dosage: UNK; 1 (TRIMESTER)
     Route: 048
  155. LOPINAVIR [Suspect]
     Active Substance: LOPINAVIR
     Dosage: UNK, 1 (TRIMESTER) THERAPY START DATE:10 JUN 2010
     Route: 050
  156. LOPINAVIR\RITONAVIR [Suspect]
     Active Substance: LOPINAVIR\RITONAVIR
     Indication: HIV infection
     Dosage: UNK, THERAPY START DATE: 10-JUN-2010
     Route: 048
  157. LOPINAVIR\RITONAVIR [Suspect]
     Active Substance: LOPINAVIR\RITONAVIR
     Indication: Antiviral treatment
     Dosage: 1 DOSAGE FORM, QD, 1(TRIMESTER) THERAPY START DATE: 10-JUN-2010
     Route: 048
     Dates: end: 20100610
  158. LOPINAVIR\RITONAVIR [Suspect]
     Active Substance: LOPINAVIR\RITONAVIR
     Indication: HIV infection
     Dosage: UNK, 1(TRIMESTER) THERAPY START DATE: 10-JUN-2010
     Route: 048
  159. LOPINAVIR\RITONAVIR [Suspect]
     Active Substance: LOPINAVIR\RITONAVIR
     Dosage: UNK, GESTATION PERIOD: 1 (WEEKS)
     Route: 065
  160. LOPINAVIR\RITONAVIR [Suspect]
     Active Substance: LOPINAVIR\RITONAVIR
     Dosage: UNK, GESTATION PERIOD: 1 (WEEKS)THERAPY START DATE: 10-JUN-2010
     Route: 065
  161. LOPINAVIR\RITONAVIR [Suspect]
     Active Substance: LOPINAVIR\RITONAVIR
     Dosage: UNK, GESTATION PERIOD: 1 (WEEKS)THERAPY START DATE: 10-JUN-2010
     Route: 050
  162. NEVIRAPINE [Suspect]
     Active Substance: NEVIRAPINE
     Indication: Antiretroviral therapy
     Dosage: 400 MG QD, THERAPY START DATE: 01-JAN-2009; 1 (TRIMESTER)
     Route: 048
     Dates: end: 20100610
  163. NEVIRAPINE [Suspect]
     Active Substance: NEVIRAPINE
     Indication: Product used for unknown indication
     Dosage: UNK, 1 (TRIMESTER)
     Route: 048
  164. NEVIRAPINE [Suspect]
     Active Substance: NEVIRAPINE
     Dosage: UNK, GESTATION PERIOD: 1 (WEEKS)
     Route: 065
  165. NEVIRAPINE [Suspect]
     Active Substance: NEVIRAPINE
     Dosage: 400 MG, QD, GESTATION PERIOD: 1 (WEEKS)
     Route: 048
  166. NEVIRAPINE [Suspect]
     Active Substance: NEVIRAPINE
     Dosage: 400 MG QD, THERAPY START DATE: 01-JAN-2009; GESTATION PERIOD: 1 (WEEKS)
     Route: 050
     Dates: end: 20100610
  167. NEVIRAPINE [Suspect]
     Active Substance: NEVIRAPINE
     Dosage: 400 MG QD, THERAPY START DATE: 01-JAN-2009;GESTATION PERIOD: 1 (WEEKS)
     Route: 065
     Dates: end: 20100610
  168. INSULIN ASPART [Suspect]
     Active Substance: INSULIN ASPART
     Indication: Product used for unknown indication
     Dosage: 1 (WEEKS), 1 (TRIMESTER)
     Route: 065
  169. INSULIN ASPART [Suspect]
     Active Substance: INSULIN ASPART
     Dosage: UNK,
     Route: 065
  170. RITONAVIR [Suspect]
     Active Substance: RITONAVIR
     Indication: HIV infection
     Dosage: UNK; 1 (TRIMESTER)
     Route: 065
  171. RITONAVIR [Suspect]
     Active Substance: RITONAVIR
     Indication: Antiviral treatment
     Dosage: UNK; 1ST TRIMESTER
     Route: 048
  172. RITONAVIR [Suspect]
     Active Substance: RITONAVIR
     Indication: Product used for unknown indication
     Dosage: UNK THERAPY START DATE 10 JUN 2010; 1 (TRIMESTER)
     Route: 048
  173. RITONAVIR [Suspect]
     Active Substance: RITONAVIR
     Dosage: UNK THERAPY START DATE 10 JUN 2010; 1 (TRIMESTER)
     Route: 065
  174. RITONAVIR [Suspect]
     Active Substance: RITONAVIR
     Dosage: UNK; GESTATION PERIOD:1 (WEEKS)
     Route: 048
  175. RITONAVIR [Suspect]
     Active Substance: RITONAVIR
     Dosage: UNK THERAPY START DATE 10 JUN 2010;GESTATION PERIOD:1 (WEEKS)
     Route: 048
  176. FOLATE SODIUM [Suspect]
     Active Substance: FOLATE SODIUM
     Indication: Supplementation therapy
     Dosage: UNK
     Route: 065
  177. FOLATE SODIUM [Suspect]
     Active Substance: FOLATE SODIUM
     Indication: Product used for unknown indication
     Dosage: 1 DOSAGE FORM, QD (1 TABLET/CAPSULE, DAILY), 05-FEB-2018
     Route: 048
  178. FOLATE SODIUM [Suspect]
     Active Substance: FOLATE SODIUM
     Dosage: UNK; GESTATION PERIOD: 1 (WEEKS)
     Route: 048
  179. FOLATE SODIUM [Suspect]
     Active Substance: FOLATE SODIUM
     Dosage: 1 DOSAGE FORM, QD 1 DOSAGE FORM, QD/05-FEB-2018, GESTATION PERIOD: 1 (WEEKS)
     Route: 065
  180. FOLATE SODIUM [Suspect]
     Active Substance: FOLATE SODIUM
     Dosage: 1 DOSAGE FORM, QD (1 TABLET/CAPSULE, DAILY),GESTATION PERIOD: 1 (WEEKS)
     Route: 048
  181. FOLATE SODIUM [Suspect]
     Active Substance: FOLATE SODIUM
     Dosage: UNK, GESTATION PERIOD: 1 (WEEKS)
     Route: 065
  182. EFAVIRENZ [Suspect]
     Active Substance: EFAVIRENZ
     Indication: HIV infection
     Dosage: 1 TABLET/CAPSULE, DAILY, THERAPY START DATE: 06 OCT 2017;
     Route: 048
  183. EFAVIRENZ [Suspect]
     Active Substance: EFAVIRENZ
     Indication: Product used for unknown indication
     Dosage: 1 DOSAGE FORM, QD 1 TABLET/CAPSULE, QD; START : 05-FEB-2018
     Route: 048
  184. EFAVIRENZ [Suspect]
     Active Substance: EFAVIRENZ
     Indication: Product used for unknown indication
     Dosage: 1 DF, QD, 1 TABLET/CAPSULE, DAILY; 1 (TRIMESTER); DRUG DOSAGE FORM:5, START DATE:06-OCT-2017
     Route: 048
  185. EFAVIRENZ [Suspect]
     Active Substance: EFAVIRENZ
     Dosage: 1 DOSAGE FORM, QD, THERAPY START DATE: 06 OCT 2017;DRUG DOSAGE FORM: 169
     Route: 048
  186. EFAVIRENZ [Suspect]
     Active Substance: EFAVIRENZ
     Dosage: 1 DOSAGE FORM, QD 1 TABLET/CAPSULE, QD;DRUG DOSAGE FORM: 169, START DATE: 05-FEB-2018
     Route: 048
  187. TRUVADA [Suspect]
     Active Substance: EMTRICITABINE\TENOFOVIR DISOPROXIL FUMARATE
     Indication: HIV infection
     Dosage: 1 DOSAGE FORM, QD, THERAPY START DATE:06 OCT 2017
     Route: 048
     Dates: end: 20180205
  188. TRUVADA [Suspect]
     Active Substance: EMTRICITABINE\TENOFOVIR DISOPROXIL FUMARATE
     Indication: Supplementation therapy
     Dosage: THERAPY START DATE: 05-FEB-2018, 1 DOSAGE FORM, QD;1 TABLET/CAPSULE, QD, DOSAGE FORM: 245,
     Route: 048
  189. TRUVADA [Suspect]
     Active Substance: EMTRICITABINE\TENOFOVIR DISOPROXIL FUMARATE
     Route: 048
  190. TRUVADA [Suspect]
     Active Substance: EMTRICITABINE\TENOFOVIR DISOPROXIL FUMARATE
     Dosage: THERAPY START DATE: 06-OCT-2017
     Route: 048
  191. TRUVADA [Suspect]
     Active Substance: EMTRICITABINE\TENOFOVIR DISOPROXIL FUMARATE
     Dosage: THERAPY START DATE: 05-FEB-2018, 1 DOSAGE FORM, QD
     Route: 048
  192. TRUVADA [Suspect]
     Active Substance: EMTRICITABINE\TENOFOVIR DISOPROXIL FUMARATE
     Dosage: UNK, GESTATION PERIOD: 1 (WEEKS)
     Route: 065
  193. TRUVADA [Suspect]
     Active Substance: EMTRICITABINE\TENOFOVIR DISOPROXIL FUMARATE
     Dosage: UNK, 1 (TRIMESTER)
     Route: 048
  194. TRUVADA [Suspect]
     Active Substance: EMTRICITABINE\TENOFOVIR DISOPROXIL FUMARATE
     Dosage: THERAPY START DATE: 05-FEB-2018, 1 DOSAGE FORM, QD 1 (TRIMESTER)
     Route: 048
  195. TRUVADA [Suspect]
     Active Substance: EMTRICITABINE\TENOFOVIR DISOPROXIL FUMARATE
     Dosage: 1 DOSAGE FORM, QD (1 TABLET/CAPSULE, QD) 1 (TRIMESTER)
     Route: 048
  196. TRUVADA [Suspect]
     Active Substance: EMTRICITABINE\TENOFOVIR DISOPROXIL FUMARATE
     Dosage: 1 DOSAGE FORM, QD; 1 TABLET, QD (REPORTED TWICE), THERAPY START DATE:06 OCT 2017
     Route: 048
     Dates: end: 20180205
  197. TRUVADA [Suspect]
     Active Substance: EMTRICITABINE\TENOFOVIR DISOPROXIL FUMARATE
     Dosage: 1 DOSAGE FORM, QD (1 TABLET/CAPSULE, QD), 1 (TRIMESTER) THERAPY START DATE:06 OCT 2017
     Route: 050
     Dates: end: 20180205
  198. TRUVADA [Suspect]
     Active Substance: EMTRICITABINE\TENOFOVIR DISOPROXIL FUMARATE
     Dosage: THERAPY START DATE: 06 OCT 2017,1 DOSAGE FORM, QD (1 TABLET, QD) 1 (TRIMESTER)
     Route: 048
  199. TRUVADA [Suspect]
     Active Substance: EMTRICITABINE\TENOFOVIR DISOPROXIL FUMARATE
     Dosage: THERAPY START DATE: 06 OCT 2017,1 DOSAGE FORM, QD (1 TABLET, QD) GESTATION PERIOD: 1 (WEEKS)
     Route: 050
  200. TRUVADA [Suspect]
     Active Substance: EMTRICITABINE\TENOFOVIR DISOPROXIL FUMARATE
     Dosage: 1 DOSAGE FORM, QD (1 TABLET/CAPSULE, QD) GESTATION PERIOD: 1 (WEEKS)
     Route: 048
  201. TRUVADA [Suspect]
     Active Substance: EMTRICITABINE\TENOFOVIR DISOPROXIL FUMARATE
     Dosage: 1 DOSAGE FORM, QD(1 TABLET/CAPSULE, QD) GESTATION PERIOD: 1 (WEEKS)
     Route: 048
     Dates: end: 20180205
  202. TRUVADA [Suspect]
     Active Substance: EMTRICITABINE\TENOFOVIR DISOPROXIL FUMARATE
     Dosage: UNK, GESTATION PERIOD: 1 (WEEKS)
     Route: 048
  203. ZIDOVUDINE [Suspect]
     Active Substance: ZIDOVUDINE
     Indication: Antiviral treatment
     Dosage: 600 MILLIGRAM, QD, THERAPY START DATE: 10-JAN-2009
     Route: 048
     Dates: end: 20100610
  204. ZIDOVUDINE [Suspect]
     Active Substance: ZIDOVUDINE
     Indication: Product used for unknown indication
     Dosage: 800 MILLIGRAM, QD, THERAPY START DATE: 10-JUN-2010
     Route: 048
     Dates: end: 20100610
  205. ZIDOVUDINE [Suspect]
     Active Substance: ZIDOVUDINE
     Dosage: 800 MILLIGRAM, QD, THERAPY START DATE: 10-JUN-2010, GESTATION PERIOD: 1 (WEEKS)
     Route: 048
     Dates: end: 20100610
  206. ZIDOVUDINE [Suspect]
     Active Substance: ZIDOVUDINE
     Dosage: 800 MILLIGRAM, QD, THERAPY START DATE: 10-JUN-2009, GESTATION PERIOD: 1 (WEEKS)
     Route: 065
     Dates: end: 20100610
  207. ZIDOVUDINE [Suspect]
     Active Substance: ZIDOVUDINE
     Dosage: UNK, GESTATION PERIOD: 1 (WEEKS)
     Route: 065
  208. ZIDOVUDINE [Suspect]
     Active Substance: ZIDOVUDINE
     Dosage: 800 MILLIGRAM, QD, THERAPY START DATE: 10-JUN-2010, GESTATION PERIOD: 1 (WEEKS)
     Route: 065
  209. ZIDOVUDINE [Suspect]
     Active Substance: ZIDOVUDINE
     Dosage: 800 MILLIGRAM, QD, THERAPY START DATE: 10-JUN-2009, GESTATION PERIOD: 1 (WEEKS)
     Route: 048
     Dates: end: 20100610
  210. ZIDOVUDINE [Suspect]
     Active Substance: ZIDOVUDINE
     Dosage: 600 MILLIGRAM, QD, THERAPY START DATE: 10-JAN-2009, GESTATION PERIOD: 1 (WEEKS)
     Route: 048
     Dates: end: 20100610
  211. ZIDOVUDINE [Suspect]
     Active Substance: ZIDOVUDINE
     Dosage: 800 MILLIGRAM, QD, THERAPY START DATE: 10-JUN-2009, GESTATION PERIOD: 1 (WEEKS)
     Route: 050
  212. ZIDOVUDINE [Suspect]
     Active Substance: ZIDOVUDINE
     Dosage: 600 MILLIGRAM, QD, THERAPY START DATE: 10-JAN-2009, GESTATION PERIOD: 1 (WEEKS)
     Route: 065
     Dates: end: 20100610
  213. ZIDOVUDINE [Suspect]
     Active Substance: ZIDOVUDINE
     Dosage: UNK, THERAPY START DATE: 10 JUN 2010 GESTATION PERIOD: 1 (WEEKS)
     Route: 048
  214. ZIDOVUDINE [Suspect]
     Active Substance: ZIDOVUDINE
     Dosage: 600 MILLIGRAM, QD, THERAPY START DATE: 10-JAN-2009. GESTATION PERIOD: 1 (WEEKS)
     Route: 050
     Dates: end: 20100610
  215. ZIDOVUDINE [Suspect]
     Active Substance: ZIDOVUDINE
     Dosage: 800 MILLIGRAM, QD, THERAPY START DATE: 10-JUN-2010
     Route: 048
     Dates: end: 20100610
  216. ZIDOVUDINE [Suspect]
     Active Substance: ZIDOVUDINE
     Dosage: 600 MILLIGRAM, QD, GESTATION PERIOD: 1 (WEEKS)
     Route: 050
     Dates: end: 20100610
  217. ZIDOVUDINE [Suspect]
     Active Substance: ZIDOVUDINE
     Dosage: 800 MILLIGRAM, QD, GESTATION PERIOD: 1 (WEEKS)
     Route: 065
  218. ZIDOVUDINE [Suspect]
     Active Substance: ZIDOVUDINE
     Dosage: 800 MILLIGRAM, QD,GESTATION PERIOD: 1 (WEEKS)
     Route: 065
  219. CYANOCOBALAMIN [Suspect]
     Active Substance: CYANOCOBALAMIN
     Indication: Product used for unknown indication
     Dosage: UNK, QW
  220. CYANOCOBALAMIN [Suspect]
     Active Substance: CYANOCOBALAMIN
     Indication: Supplementation therapy
     Dosage: UNK
  221. FOLIC ACID [Suspect]
     Active Substance: FOLIC ACID
     Indication: Product used for unknown indication
     Dosage: 1 DOSAGE FORM, OD (1 TABLET/CAPSULE, DAILY)
     Route: 048
  222. FOLIC ACID [Suspect]
     Active Substance: FOLIC ACID
     Dosage: 1 DF, QD (1 TABLET/CAPSULE, DAILY)
     Route: 048
  223. FOLIC ACID [Suspect]
     Active Substance: FOLIC ACID
     Dosage: 1 DOSAGE FORM, QD, 1 DF, QD (1 TABLET/CAPSULE, DAILY)
     Route: 048
  224. FOLIC ACID [Suspect]
     Active Substance: FOLIC ACID
     Dosage: UNK
  225. FOLIC ACID [Suspect]
     Active Substance: FOLIC ACID
     Dosage: UNK, UNK, (1 TABLET/CAPSULE)
  226. FOLIC ACID [Suspect]
     Active Substance: FOLIC ACID
     Dosage: UNK
     Route: 048
  227. FOLIC ACID [Suspect]
     Active Substance: FOLIC ACID
     Dosage: UNK
     Route: 065
  228. FOLIC ACID [Suspect]
     Active Substance: FOLIC ACID
     Dosage: 1 DOSAGE FORM, QD, 1 DF, QD (1 TABLET/CAPSULE, DAILY)
     Route: 048
  229. FOLIC ACID [Suspect]
     Active Substance: FOLIC ACID
     Dosage: 1 TABLET/CAPSULE
     Route: 048
  230. FOLIC ACID [Suspect]
     Active Substance: FOLIC ACID
     Dosage: UNK, UNK, (1 TABLET/CAPSULE)
     Route: 048
  231. FOLIC ACID [Suspect]
     Active Substance: FOLIC ACID
     Dosage: 1 MILLIGRAM, QD
     Route: 048
  232. TENOFOVIR [Suspect]
     Active Substance: TENOFOVIR
     Indication: Supplementation therapy
     Dosage: 300 MILLIGRAM, QD
     Route: 048
     Dates: start: 20100610
  233. TENOFOVIR [Suspect]
     Active Substance: TENOFOVIR
     Indication: Product used for unknown indication
     Dosage: THERAPY START 06 OCT 2017
     Route: 048
     Dates: start: 20100610, end: 20180205
  234. TENOFOVIR [Suspect]
     Active Substance: TENOFOVIR
     Indication: HIV infection
     Dosage: UNK
  235. TENOFOVIR [Suspect]
     Active Substance: TENOFOVIR
     Dosage: THERAPY START:05 FEB 2018.1 DOSAGE FORM, QD
  236. TENOFOVIR [Suspect]
     Active Substance: TENOFOVIR
     Dosage: THERAPY START:10 JUN 2017.1 DOSAGE FORM, QD
     Dates: end: 20180205
  237. TENOFOVIR [Suspect]
     Active Substance: TENOFOVIR
     Dosage: 1 DOSAGE FORM, QD ,THERAPY START: 06 OCT 2017
  238. TENOFOVIR DISOPROXIL FUMARATE [Suspect]
     Active Substance: TENOFOVIR DISOPROXIL FUMARATE
     Indication: Product used for unknown indication
     Dosage: UNK
     Route: 048
  239. TENOFOVIR DISOPROXIL FUMARATE [Suspect]
     Active Substance: TENOFOVIR DISOPROXIL FUMARATE
     Indication: HIV infection
     Dosage: 300 MILLIGRAM, QD
  240. TENOFOVIR DISOPROXIL FUMARATE [Suspect]
     Active Substance: TENOFOVIR DISOPROXIL FUMARATE
     Indication: HIV infection
     Dosage: 1 DOSAGE FORM THERAPY START DATE: 10 JUN 2017
     Route: 048
     Dates: end: 20180205
  241. TENOFOVIR DISOPROXIL FUMARATE [Suspect]
     Active Substance: TENOFOVIR DISOPROXIL FUMARATE
     Dosage: 1 DOSAGE FORM THERAPY START DATE: 05 FEB 2018
     Route: 048
  242. TENOFOVIR DISOPROXIL FUMARATE [Suspect]
     Active Substance: TENOFOVIR DISOPROXIL FUMARATE
     Dosage: THERAPY START 06 OCT 2017 1 DOSAGE FORM, QD
  243. TENOFOVIR DISOPROXIL FUMARATE [Suspect]
     Active Substance: TENOFOVIR DISOPROXIL FUMARATE
     Dosage: 1 DF, QD, THERAPY START 05 FEB 2018
     Route: 048
  244. EMTRICITABINE\TENOFOVIR [Suspect]
     Active Substance: EMTRICITABINE\TENOFOVIR
     Indication: Product used for unknown indication
     Dosage: 1 DOSAGE FORM, QD 1 TABLET/CAPSULE, DAILY
     Route: 048
  245. EMTRICITABINE\TENOFOVIR [Suspect]
     Active Substance: EMTRICITABINE\TENOFOVIR
     Indication: HIV infection
     Dosage: UNK, DOSAGE FORM 245
     Route: 048
  246. EMTRICITABINE\TENOFOVIR [Suspect]
     Active Substance: EMTRICITABINE\TENOFOVIR
     Indication: Supplementation therapy
     Dosage: DOSAGE FORM 245, 1 DOSAGE FORM, QD (TAB/CAP, DAILY, THERAPY START: 10 JUN 2017
     Route: 048
     Dates: end: 20180205
  247. EMTRICITABINE\TENOFOVIR [Suspect]
     Active Substance: EMTRICITABINE\TENOFOVIR
     Dosage: DOSAGE FORM 245, 1 DOSAGE FORM, QD (TAB/CAP, DAILY,
     Route: 048
  248. EMTRICITABINE\TENOFOVIR [Suspect]
     Active Substance: EMTRICITABINE\TENOFOVIR
     Dosage: 1 DOSAGE FORM, QD (ALSO RECEIVED ON 05-FEB-2018 ) THERAPY START: 10 JUN 2017
     Route: 048
     Dates: end: 20180205
  249. EMTRICITABINE\TENOFOVIR [Suspect]
     Active Substance: EMTRICITABINE\TENOFOVIR
     Dosage: 1 DOSAGE FORM, QD
     Route: 048
  250. TENOFOVIR DISOPROXIL [Concomitant]
     Active Substance: TENOFOVIR DISOPROXIL
     Indication: Product used for unknown indication
     Dosage: UNK
     Route: 065

REACTIONS (11)
  - Hepatic cytolysis [Fatal]
  - Aspartate aminotransferase increased [Fatal]
  - Alanine aminotransferase increased [Fatal]
  - Abortion spontaneous [Fatal]
  - Caesarean section [Fatal]
  - Intentional product use issue [Fatal]
  - Maternal exposure during pregnancy [Fatal]
  - Ultrasound antenatal screen [Fatal]
  - Off label use [Fatal]
  - Exposure during pregnancy [Fatal]
  - Drug abuse [Unknown]

NARRATIVE: CASE EVENT DATE: 20100629
